FAERS Safety Report 4694742-0 (Version None)
Quarter: 2005Q2

REPORT INFORMATION
  Report Type: 
  Country: None (occurrence: None)
  Receive Date: 20050620
  Receipt Date: 20050611
  Transmission Date: 20051028
  Serious: Yes (Death, Hospitalization)
  Sender: FDA-Public Use
  Company Number: PHEH2005US06640

PATIENT
  Age: 63 Year
  Sex: Female

DRUGS (1)
  1. GLEEVEC [Suspect]
     Dosage: 600 MG, QD
     Route: 050
     Dates: start: 20010101, end: 20050501

REACTIONS (3)
  - DEATH [None]
  - KAPOSI'S SARCOMA [None]
  - LYMPHADENOPATHY [None]
